FAERS Safety Report 16765396 (Version 1)
Quarter: 2019Q3

REPORT INFORMATION
  Report Type: Spontaneous
  Country: US (occurrence: US)
  Receive Date: 20190712
  Receipt Date: 20190712
  Transmission Date: 20191005
  Serious: Yes (Hospitalization)
  Sender: FDA-Public Use
  Company Number: None

PATIENT
  Age: 69 Year
  Sex: Male
  Weight: 76.29 kg

DRUGS (2)
  1. ROSUVASTATIN. [Suspect]
     Active Substance: ROSUVASTATIN
     Indication: BLOOD CHOLESTEROL
     Dosage: ?          OTHER FREQUENCY:BEDTIME;?
     Route: 048
     Dates: start: 20170901, end: 20190101
  2. ATOVAQUONE. [Suspect]
     Active Substance: ATOVAQUONE
     Indication: ANTIFUNGAL PROPHYLAXIS
     Route: 048
     Dates: start: 20181212, end: 20190110

REACTIONS (18)
  - Asthenia [None]
  - Bilirubin conjugated increased [None]
  - Toxicity to various agents [None]
  - Alanine aminotransferase increased [None]
  - Sarcoidosis [None]
  - Myalgia [None]
  - Inflammation [None]
  - Aspartate aminotransferase increased [None]
  - Fall [None]
  - Myopathy [None]
  - Blood bilirubin increased [None]
  - Ocular icterus [None]
  - Myositis [None]
  - Contusion [None]
  - Drug hypersensitivity [None]
  - Blood albumin decreased [None]
  - Blood alkaline phosphatase increased [None]
  - Pancytopenia [None]

NARRATIVE: CASE EVENT DATE: 20190110
